FAERS Safety Report 12191579 (Version 8)
Quarter: 2016Q4

REPORT INFORMATION
  Report Type: Report from Study
  Country: GB (occurrence: GB)
  Receive Date: 20160318
  Receipt Date: 20161110
  Transmission Date: 20170207
  Serious: Yes (Other)
  Sender: FDA-Public Use
  Company Number: GB-EISAI MEDICAL RESEARCH-EC-2016-015189

PATIENT
  Age: 49 Year
  Sex: Male

DRUGS (20)
  1. LAMOTRIGINE/LAMICTAL [Interacting]
     Route: 048
     Dates: start: 20150224, end: 20151102
  2. LAMOTRIGINE/LAMICTAL [Interacting]
     Route: 048
     Dates: start: 20151210, end: 20151216
  3. LAMOTRIGINE/LAMICTAL [Interacting]
     Route: 048
     Dates: start: 20140110, end: 20140915
  4. LAMOTRIGINE/LAMICTAL [Interacting]
     Route: 048
     Dates: start: 20151117, end: 20151123
  5. LAMOTRIGINE/LAMICTAL [Interacting]
     Route: 048
     Dates: start: 20151217, end: 20151223
  6. BUCCAL MIDAZOLAM [Concomitant]
  7. EPILIM [Concomitant]
     Active Substance: VALPROATE SODIUM
  8. VITAMIN D SUPPLEMENTS [Concomitant]
  9. FYCOMPA [Suspect]
     Active Substance: PERAMPANEL
     Indication: EPILEPSY
     Route: 048
     Dates: start: 20150910, end: 20151015
  10. LAMOTRIGINE/LAMICTAL [Interacting]
     Route: 048
     Dates: start: 20151110, end: 20151116
  11. LEVETIRACETAM. [Concomitant]
     Active Substance: LEVETIRACETAM
  12. LAMOTRIGINE/LAMICTAL [Interacting]
     Indication: EPILEPSY
     Route: 048
     Dates: start: 20130910, end: 20140109
  13. LAMOTRIGINE/LAMICTAL [Interacting]
     Route: 048
     Dates: start: 20140916, end: 20150223
  14. LAMOTRIGINE/LAMICTAL [Interacting]
     Route: 048
     Dates: start: 20151124, end: 20151209
  15. FYCOMPA [Interacting]
     Active Substance: PERAMPANEL
     Route: 048
     Dates: start: 20151016, end: 20151209
  16. FYCOMPA [Interacting]
     Active Substance: PERAMPANEL
     Route: 048
     Dates: start: 20151210, end: 20151227
  17. TEGRETOL XR [Interacting]
     Active Substance: CARBAMAZEPINE
     Indication: EPILEPSY
     Route: 048
     Dates: start: 19800107
  18. LAMOTRIGINE/LAMICTAL [Interacting]
     Route: 048
     Dates: start: 20151103, end: 20151109
  19. SERTRALINE [Concomitant]
     Active Substance: SERTRALINE HYDROCHLORIDE
  20. FOLIC ACID. [Concomitant]
     Active Substance: FOLIC ACID

REACTIONS (9)
  - Balance disorder [Recovered/Resolved]
  - Middle insomnia [Recovered/Resolved]
  - Drug interaction [Recovered/Resolved]
  - Fatigue [Recovered/Resolved]
  - Nasopharyngitis [Recovered/Resolved]
  - Headache [Recovered/Resolved]
  - Tongue ulceration [Recovered/Resolved]
  - Disturbance in attention [Recovered/Resolved]
  - Seizure [Recovered/Resolved]

NARRATIVE: CASE EVENT DATE: 20150910
